FAERS Safety Report 26165817 (Version 2)
Quarter: 2025Q4

REPORT INFORMATION
  Report Type: Report from Study
  Country: GB (occurrence: GB)
  Receive Date: 20251216
  Receipt Date: 20251223
  Transmission Date: 20260117
  Serious: No
  Sender: PFIZER
  Company Number: GB-PFIZER INC-PV202500145586

PATIENT
  Age: 16 Year
  Sex: Male

DRUGS (1)
  1. GENOTROPIN [Suspect]
     Active Substance: SOMATROPIN
     Indication: Hypopituitarism
     Dosage: 1 MG, 1X/DAY, EVENING
     Route: 058

REACTIONS (3)
  - Drug dose omission by device [Unknown]
  - Device information output issue [Unknown]
  - Device power source issue [Unknown]
